FAERS Safety Report 23389841 (Version 1)
Quarter: 2024Q1

REPORT INFORMATION
  Report Type: Spontaneous
  Country: VN (occurrence: VN)
  Receive Date: 20240111
  Receipt Date: 20240111
  Transmission Date: 20240409
  Serious: Yes (Other)
  Sender: FDA-Public Use
  Company Number: VN-Korea IPSEN-2024-00379

PATIENT
  Sex: Male

DRUGS (1)
  1. DYSPORT [Suspect]
     Active Substance: ABOBOTULINUMTOXINA
     Indication: Facial spasm
     Dosage: DYSPORT (UNKNOWN WHETHER IT IS 300U OR 500U FORMULATION), EVERY } 12WEEKS
     Route: 058
     Dates: start: 202310, end: 202310

REACTIONS (1)
  - Facial paralysis [Recovering/Resolving]

NARRATIVE: CASE EVENT DATE: 20231001
